FAERS Safety Report 8260339-9 (Version None)
Quarter: 2012Q2

REPORT INFORMATION
  Report Type: 
  Country: None (occurrence: None)
  Receive Date: 20120404
  Receipt Date: 20120323
  Transmission Date: 20120825
  Serious: Yes (Death, Other)
  Sender: FDA-Public Use
  Company Number: DE-ELI_LILLY_AND_COMPANY-DE201203006981

PATIENT
  Sex: Female

DRUGS (2)
  1. OLANZAPINE [Suspect]
     Indication: SCHIZOPHRENIA
     Dosage: 300 MG, EVERY 2 WEEKS
     Dates: start: 20100101
  2. AKINETON [Concomitant]
     Indication: MOVEMENT DISORDER
     Dosage: 2 MG, UNKNOWN

REACTIONS (1)
  - CONVULSION [None]
